FAERS Safety Report 16244762 (Version 2)
Quarter: 2019Q2

REPORT INFORMATION
  Report Type: Report from Study
  Country: CA (occurrence: CA)
  Receive Date: 20190426
  Receipt Date: 20190506
  Transmission Date: 20190711
  Serious: Yes (Death, Other)
  Sender: FDA-Public Use
  Company Number: CA-JNJFOC-20190135954

PATIENT
  Age: 92 Year
  Sex: Male

DRUGS (1)
  1. SIMPONI [Suspect]
     Active Substance: GOLIMUMAB
     Indication: COLITIS ULCERATIVE
     Route: 058
     Dates: start: 20170518, end: 20190417

REACTIONS (3)
  - Pneumonia [Fatal]
  - Colitis ulcerative [Unknown]
  - Palliative care [Unknown]

NARRATIVE: CASE EVENT DATE: 20190116
